FAERS Safety Report 4541102-9 (Version None)
Quarter: 2004Q4

REPORT INFORMATION
  Report Type: 
  Country: None (occurrence: None)
  Receive Date: 20041228
  Receipt Date: 20041214
  Transmission Date: 20050328
  Serious: Yes (Hospitalization)
  Sender: FDA-Public Use
  Company Number: 2004-123481-NL

PATIENT
  Age: 55 Year
  Sex: Male

DRUGS (3)
  1. MIRTAZAPINE [Suspect]
     Indication: DEPRESSION
     Dosage: 30 MG ORAL
     Route: 048
     Dates: start: 20040101, end: 20041113
  2. ALBUTEROL [Concomitant]
  3. SALMETEROL XINAFOATE [Concomitant]

REACTIONS (5)
  - BONE MARROW DEPRESSION [None]
  - CONTUSION [None]
  - DYSPNOEA [None]
  - HYPOTHYROIDISM [None]
  - RASH MACULAR [None]
